FAERS Safety Report 4439830-9 (Version None)
Quarter: 2004Q3

REPORT INFORMATION
  Report Type: 
  Country: None (occurrence: None)
  Receive Date: 20040831
  Receipt Date: 20040820
  Transmission Date: 20050211
  Serious: Yes (Hospitalization)
  Sender: FDA-Public Use
  Company Number: STA-AE-04-MTX-379

PATIENT
  Age: 65 Year
  Sex: Male

DRUGS (13)
  1. METHOTREXATE [Suspect]
     Indication: RHEUMATOID ARTHRITIS
     Dosage: 7.5 MG 1X PER 1 WK, ORAL
     Route: 048
     Dates: start: 20000715, end: 20010101
  2. ENBREL [Suspect]
     Indication: RHEUMATOID ARTHRITIS
     Dosage: SC
     Route: 058
     Dates: start: 20000316, end: 20000622
  3. ARAVA [Suspect]
     Indication: RHEUMATOID ARTHRITIS
     Dosage: 20 MG 1X PER 1 DAY, ORAL
     Route: 048
     Dates: start: 20010118, end: 20040101
  4. CHLORAMBUCIL (CHLORAMBUCIL) [Suspect]
     Indication: RHEUMATOID ARTHRITIS
     Dosage: ORAL
     Route: 048
  5. PREDNISONE [Suspect]
     Dosage: 10 MG 1X PER 1 DAY,ORAL
     Route: 048
  6. COZAAR [Suspect]
     Dosage: 25 MG 1X PER 1 DAY,ORAL
     Route: 048
  7. BISOPROLOL FUMARATE [Suspect]
     Dosage: 5 MG 1X PER 1 DAY, ORAL
     Route: 048
  8. PRAVASTATIN [Suspect]
     Dosage: 40 MG 1X PER 1 DAY, ORAL
     Route: 048
  9. ASPIRIN [Suspect]
     Dosage: 1 TABLET 1X PER 1 DAY, ORAL
     Route: 048
  10. LASIX [Suspect]
     Dosage: 20 MG 1X PER 1 DAY, ORAL
     Route: 048
  11. OMEPRAZOLE [Suspect]
     Dosage: 20 MG 1X PER 1 DAY, ORAL
     Route: 048
  12. REMICADE [Suspect]
     Indication: RHEUMATOID ARTHRITIS
     Dosage: INTRAVENOUS
     Route: 042
     Dates: start: 20000710, end: 20000101
  13. PENTASA [Concomitant]

REACTIONS (1)
  - T-CELL LYMPHOMA STAGE IV [None]
